FAERS Safety Report 13349957 (Version 1)
Quarter: 2017Q1

REPORT INFORMATION
  Report Type: Spontaneous
  Country: US (occurrence: US)
  Receive Date: 20170319
  Receipt Date: 20170319
  Transmission Date: 20170429
  Serious: Yes (Disabling)
  Sender: FDA-Public Use
  Company Number: None

PATIENT
  Age: 31 Year
  Sex: Female
  Weight: 42.75 kg

DRUGS (1)
  1. CIPROFLOXACIN HCL 500MG [Suspect]
     Active Substance: CIPROFLOXACIN HYDROCHLORIDE
     Indication: URINARY TRACT INFECTION
     Dosage: ?          QUANTITY:12 TABLET(S);?
     Route: 048
     Dates: start: 20170203, end: 20170206

REACTIONS (5)
  - Hypoaesthesia [None]
  - Burning sensation [None]
  - Gait disturbance [None]
  - Paraesthesia [None]
  - Arthralgia [None]

NARRATIVE: CASE EVENT DATE: 20170216
